FAERS Safety Report 6293831-7 (Version None)
Quarter: 2009Q3

REPORT INFORMATION
  Report Type: 
  Country: None (occurrence: None)
  Receive Date: 20090803
  Receipt Date: 20090730
  Transmission Date: 20100115
  Serious: Yes (Death)
  Sender: FDA-Public Use
  Company Number: PHEH2009US07880

PATIENT
  Sex: Female

DRUGS (1)
  1. SANDOSTATIN LAR [Suspect]
     Indication: CARCINOID TUMOUR
     Dosage: 1000 MCG/ML
     Route: 058
     Dates: end: 20090606

REACTIONS (3)
  - HYPOTENSION [None]
  - MALIGNANT NEOPLASM PROGRESSION [None]
  - TACHYCARDIA [None]
